FAERS Safety Report 6073006-7 (Version None)
Quarter: 2009Q1

REPORT INFORMATION
  Report Type: 
  Country: None (occurrence: None)
  Receive Date: 20090209
  Receipt Date: 20090209
  Transmission Date: 20090719
  Serious: Yes (Disabling)
  Sender: FDA-Public Use
  Company Number: None

PATIENT
  Age: 73 Year
  Sex: Female

DRUGS (11)
  1. FOSAMAX [Suspect]
     Indication: OSTEOPOROSIS
     Dosage: ORAL;70.0 MILLIGRAM
     Route: 048
     Dates: start: 20061001, end: 20081001
  2. ADVAIR DISKUS 100/50 [Concomitant]
  3. SPIRIVA [Concomitant]
  4. PATANOL [Concomitant]
  5. RABEPRAZOLE SODIUM [Concomitant]
  6. PREDNISONE TAB [Concomitant]
  7. FLUTICASONE PROPIONATE [Concomitant]
  8. COLCHICINE [Concomitant]
  9. CETIRIZONE [Concomitant]
  10. FELODIPINE [Concomitant]
  11. ALBUTEROL [Concomitant]

REACTIONS (2)
  - TOOTH FRACTURE [None]
  - TOOTH LOSS [None]
